FAERS Safety Report 4345064-9 (Version None)
Quarter: 2004Q1

REPORT INFORMATION
  Report Type: 
  Country: None (occurrence: None)
  Receive Date: 20040325
  Receipt Date: 20040115
  Transmission Date: 20041129
  Serious: No
  Sender: FDA-Public Use
  Company Number: USA040156711

PATIENT
  Age: 59 Year
  Sex: Female
  Weight: 55 kg

DRUGS (1)
  1. FORTEO [Suspect]
     Indication: OSTEOPOROSIS
     Dates: start: 20030601

REACTIONS (8)
  - ABDOMINAL PAIN UPPER [None]
  - CHEST WALL PAIN [None]
  - DIARRHOEA [None]
  - FEELING ABNORMAL [None]
  - GASTROENTERITIS VIRAL [None]
  - NAUSEA [None]
  - SOMNOLENCE [None]
  - VOMITING [None]
